FAERS Safety Report 15105244 (Version 2)
Quarter: 2018Q4

REPORT INFORMATION
  Report Type: Spontaneous
  Country: US (occurrence: US)
  Receive Date: 20180704
  Receipt Date: 20181015
  Transmission Date: 20190204
  Serious: No
  Sender: FDA-Public Use
  Company Number: US-ELI_LILLY_AND_COMPANY-US201806013572

PATIENT
  Age: 84 Year
  Sex: Female

DRUGS (3)
  1. BASAGLAR [Suspect]
     Active Substance: INSULIN GLARGINE
     Dosage: 50 U, EACH EVENING (EACH NIGHT)
     Route: 058
  2. BASAGLAR [Suspect]
     Active Substance: INSULIN GLARGINE
     Indication: DIABETES MELLITUS
     Dosage: UNK UNK, BID
     Route: 065
  3. NOVOLOG [Concomitant]
     Active Substance: INSULIN ASPART
     Indication: DIABETES MELLITUS
     Dosage: UNK, PRN

REACTIONS (7)
  - Arthritis [Unknown]
  - Blood glucose increased [Unknown]
  - Inappropriate schedule of product administration [Unknown]
  - Pain [Unknown]
  - Product dose omission [Unknown]
  - Malaise [Unknown]
  - Blood glucose increased [Unknown]

NARRATIVE: CASE EVENT DATE: 201806
